FAERS Safety Report 25011187 (Version 1)
Quarter: 2025Q1

REPORT INFORMATION
  Report Type: Spontaneous
  Country: US (occurrence: US)
  Receive Date: 20250226
  Receipt Date: 20250226
  Transmission Date: 20250409
  Serious: No
  Sender: ROCHE
  Company Number: US-ROCHE-10000211951

PATIENT
  Age: 43 Year
  Sex: Male

DRUGS (2)
  1. VISMODEGIB [Suspect]
     Active Substance: VISMODEGIB
     Indication: Basal cell carcinoma
     Dosage: 11 WEEKS
     Route: 048
  2. CEMIPLIMAB [Concomitant]
     Active Substance: CEMIPLIMAB

REACTIONS (2)
  - Ageusia [Recovered/Resolved]
  - Alopecia [Recovered/Resolved]
